FAERS Safety Report 19495970 (Version 1)
Quarter: 2021Q3

REPORT INFORMATION
  Report Type: Spontaneous
  Country: GB (occurrence: GB)
  Receive Date: 20210706
  Receipt Date: 20210706
  Transmission Date: 20211014
  Serious: Yes (Other)
  Sender: FDA-Public Use
  Company Number: GB-ORGANON-O2106GBR002489

PATIENT
  Age: 70 Year
  Sex: Male
  Weight: 90 kg

DRUGS (12)
  1. LOSARTAN POTASSIUM. [Suspect]
     Active Substance: LOSARTAN POTASSIUM
     Indication: ILL-DEFINED DISORDER
     Dosage: UNK
     Dates: start: 20210628
  2. ASPIRIN [ACETYLSALICYLIC ACID] [Concomitant]
     Active Substance: ASPIRIN
     Indication: ILL-DEFINED DISORDER
     Dosage: ONE TO BE TAKEN DAILY
     Dates: start: 20201203
  3. OMEPRAZOLE. [Concomitant]
     Active Substance: OMEPRAZOLE
     Indication: ILL-DEFINED DISORDER
     Dosage: TAKE ONE DAILY
     Dates: start: 20190201
  4. SCHERIPROCT [CINCHOCAINE HYDROCHLORIDE;PREDNISOLONE CAPROATE] [Concomitant]
     Indication: ILL-DEFINED DISORDER
     Dosage: INSERT ONE DAILY
     Dates: start: 20190201
  5. CLOTRIMAZOLE. [Concomitant]
     Active Substance: CLOTRIMAZOLE
     Indication: ILL-DEFINED DISORDER
     Dosage: APPLY 2?3 TIMES/DAY
     Dates: start: 20210519, end: 20210616
  6. AVEENO [Concomitant]
     Active Substance: DIMETHICONE\HOMOSALATE\OCTINOXATE\OCTISALATE\TITANIUM DIOXIDE
     Indication: ILL-DEFINED DISORDER
     Dosage: TO BE TAKEN TWICE DAILY
     Dates: start: 20190201
  7. EZETIMIBE. [Concomitant]
     Active Substance: EZETIMIBE
     Indication: ILL-DEFINED DISORDER
     Dosage: ONE TO BE TAKEN DAILY
     Dates: start: 20190201
  8. METFORMIN [Concomitant]
     Active Substance: METFORMIN HYDROCHLORIDE
     Indication: ILL-DEFINED DISORDER
     Dosage: 2 EVERY DAY
     Dates: start: 20191209
  9. LOSARTAN POTASSIUM. [Concomitant]
     Active Substance: LOSARTAN POTASSIUM
     Indication: ILL-DEFINED DISORDER
     Dosage: TAKE ONE DAILY
     Dates: start: 20210310, end: 20210628
  10. AMLODIPINE [Concomitant]
     Active Substance: AMLODIPINE BESYLATE
     Indication: ILL-DEFINED DISORDER
     Dosage: TAKE ONE DAILY
     Dates: start: 20190201
  11. CARBOMER [Concomitant]
     Active Substance: CARBOMER
     Indication: ILL-DEFINED DISORDER
     Dosage: USE AS DIRECTED
     Dates: start: 20201203
  12. SILDENAFIL. [Concomitant]
     Active Substance: SILDENAFIL
     Indication: ILL-DEFINED DISORDER
     Dosage: USE AS DIRECTED
     Dates: start: 20190201

REACTIONS (1)
  - Adverse drug reaction [Unknown]

NARRATIVE: CASE EVENT DATE: 20210628
